FAERS Safety Report 4565389-1 (Version None)
Quarter: 2005Q1

REPORT INFORMATION
  Report Type: 
  Country: None (occurrence: None)
  Receive Date: 20050126
  Receipt Date: 20050111
  Transmission Date: 20050727
  Serious: Yes (Hospitalization, Other)
  Sender: FDA-Public Use
  Company Number: USA050188072

PATIENT
  Age: 51 Year
  Sex: Female
  Weight: 75 kg

DRUGS (6)
  1. HUMATROPE [Suspect]
     Indication: GROWTH HORMONE DEFICIENCY
     Dates: start: 20040601
  2. LASIX [Concomitant]
  3. XANAX (ALPRAZOLAM DUM) [Concomitant]
  4. POTASSIUM CHLORIDE [Concomitant]
  5. BLOOD PRESSURE MEDICINE [Concomitant]
  6. THYROID TAB [Concomitant]

REACTIONS (10)
  - DEHYDRATION [None]
  - HEADACHE [None]
  - HYPOAESTHESIA [None]
  - MENOPAUSE [None]
  - MYALGIA [None]
  - NAUSEA [None]
  - OEDEMA PERIPHERAL [None]
  - SWELLING FACE [None]
  - SYNCOPE [None]
  - WEIGHT INCREASED [None]
